FAERS Safety Report 9497251 (Version 2)
Quarter: 2013Q3

REPORT INFORMATION
  Report Type: Report from Study
  Country: AU (occurrence: AU)
  Receive Date: 20130904
  Receipt Date: 20130930
  Transmission Date: 20140515
  Serious: Yes (Hospitalization)
  Sender: FDA-Public Use
  Company Number: PHHY2013AU096553

PATIENT
  Age: 50 Year
  Sex: Male

DRUGS (8)
  1. CLOZARIL [Suspect]
     Indication: SCHIZOPHRENIA
     Dosage: 750 MG
     Dates: start: 20090526, end: 20130826
  2. CLOZARIL [Suspect]
     Dosage: 700 MG, UNK
     Route: 048
     Dates: start: 20130829
  3. CLOZARIL [Suspect]
     Dosage: 25 MG, UNK
  4. LITHIUM CARBONATE [Concomitant]
     Indication: SCHIZOAFFECTIVE DISORDER
     Dosage: 750 MG, NOCTE
     Route: 048
  5. VENLAFAXINE XR [Concomitant]
     Indication: SCHIZOAFFECTIVE DISORDER DEPRESSIVE TYPE
     Dosage: 300 MG, MANE
     Route: 048
  6. AMISULPRIDE [Concomitant]
     Indication: SCHIZOAFFECTIVE DISORDER
     Dosage: 300 MG, BID
     Route: 048
  7. CHOLECALCIFEROL [Concomitant]
     Indication: VITAMIN D DEFICIENCY
     Dosage: 25 UG, MANE
     Route: 048
     Dates: start: 201309
  8. PANTOPRAZOLE [Concomitant]
     Indication: REFLUX GASTRITIS
     Dosage: 40 MG, MANE
     Route: 048

REACTIONS (6)
  - Suicidal ideation [Recovering/Resolving]
  - Psychomotor retardation [Recovering/Resolving]
  - Depression [Recovering/Resolving]
  - Malaise [Recovering/Resolving]
  - Hallucination, auditory [Recovering/Resolving]
  - Paranoia [Recovering/Resolving]
